FAERS Safety Report 5034028-8 (Version None)
Quarter: 2006Q2

REPORT INFORMATION
  Report Type: 
  Country: None (occurrence: None)
  Receive Date: 20060620
  Receipt Date: 20060606
  Transmission Date: 20061013
  Serious: Yes (Other)
  Sender: FDA-Public Use
  Company Number: DEU-2006-0002254

PATIENT
  Sex: Female

DRUGS (1)
  1. MORPHINE SULFATE [Suspect]
     Indication: PAIN
     Dosage: 4800 MG, DAILY, ORAL
     Route: 048
     Dates: end: 20030101

REACTIONS (2)
  - DRUG RESISTANCE [None]
  - HYPERAESTHESIA [None]
